FAERS Safety Report 15354096 (Version 4)
Quarter: 2018Q4

REPORT INFORMATION
  Report Type: Report from Study
  Country: US (occurrence: US)
  Receive Date: 20180906
  Receipt Date: 20181009
  Transmission Date: 20190204
  Serious: No
  Sender: FDA-Public Use
  Company Number: US-AMGEN-USASL2018122065

PATIENT
  Age: 86 Year
  Sex: Female

DRUGS (1)
  1. ENBREL [Suspect]
     Active Substance: ETANERCEPT
     Indication: RHEUMATOID ARTHRITIS
     Dosage: 50 MG, QWK
     Route: 065
     Dates: start: 201808

REACTIONS (8)
  - Joint stiffness [Unknown]
  - Pain in extremity [Unknown]
  - Joint swelling [Unknown]
  - Therapeutic response shortened [Unknown]
  - Peripheral swelling [Unknown]
  - Pain [Unknown]
  - Arthralgia [Unknown]
  - Injection site erythema [Recovering/Resolving]

NARRATIVE: CASE EVENT DATE: 2018
